FAERS Safety Report 17065402 (Version 2)
Quarter: 2019Q4

REPORT INFORMATION
  Report Type: Spontaneous
  Country: US (occurrence: US)
  Receive Date: 20191122
  Receipt Date: 20191127
  Transmission Date: 20200122
  Serious: Yes (Other)
  Sender: FDA-Public Use
  Company Number: US-GLAXOSMITHKLINE-US2019206674

PATIENT
  Age: 54 Year
  Sex: Male

DRUGS (2)
  1. BENLYSTA [Suspect]
     Active Substance: BELIMUMAB
     Indication: SYSTEMIC LUPUS ERYTHEMATOSUS
     Dosage: 1 DF, CYC, ONCE A MONTH
     Route: 042
     Dates: start: 20171205
  2. BENLYSTA [Suspect]
     Active Substance: BELIMUMAB
     Dosage: 1 DF, CYC, ONCE A MONTH
     Route: 042
     Dates: start: 20180131, end: 20190430

REACTIONS (3)
  - Systemic lupus erythematosus [Unknown]
  - Disease recurrence [Recovered/Resolved]
  - Upper respiratory tract infection [Recovered/Resolved]

NARRATIVE: CASE EVENT DATE: 20181113
